FAERS Safety Report 19039358 (Version 3)
Quarter: 2021Q2

REPORT INFORMATION
  Report Type: Spontaneous
  Country: US (occurrence: US)
  Receive Date: 20210322
  Receipt Date: 20210430
  Transmission Date: 20210717
  Serious: No
  Sender: FDA-Public Use
  Company Number: US-LUPIN PHARMACEUTICALS INC.-2021-03593

PATIENT
  Age: 33 Year
  Sex: Male
  Weight: 63.49 kg

DRUGS (2)
  1. LEVETIRACETAM TABLETS USP, 500 MG [Suspect]
     Active Substance: LEVETIRACETAM
     Indication: EPILEPSY
     Dosage: UNK PAST 15 YEARS
     Route: 048
  2. LEVETIRACETAM TABLETS USP, 500 MG [Suspect]
     Active Substance: LEVETIRACETAM
     Dosage: 1 DOSAGE FORM, BID
     Route: 048
     Dates: start: 20210305, end: 20210309

REACTIONS (4)
  - Visual impairment [Recovered/Resolved]
  - Migraine [Recovered/Resolved]
  - Product taste abnormal [Unknown]
  - Dizziness [Recovered/Resolved]

NARRATIVE: CASE EVENT DATE: 202003
